FAERS Safety Report 5443243-0 (Version None)
Quarter: 2007Q3

REPORT INFORMATION
  Report Type: 
  Country: None (occurrence: None)
  Receive Date: 20070831
  Receipt Date: 20070831
  Transmission Date: 20080115
  Serious: Yes (Death)
  Sender: FDA-Public Use
  Company Number: None

PATIENT
  Sex: Male
  Weight: 88 kg

DRUGS (5)
  1. BEVACIZUMAB 10 MG/KG [Suspect]
     Indication: GLIOBLASTOMA MULTIFORME
     Dosage: 10MG/M2 D1 + D15 Q CYCLE IV
     Route: 042
     Dates: start: 20070503, end: 20070531
  2. ETOPOSIDE [Suspect]
     Indication: GLIOBLASTOMA MULTIFORME
     Dosage: 100MG/M2 DAILY 21/28 DAYS PO
     Route: 048
     Dates: start: 20070503, end: 20070621
  3. DECADRON [Concomitant]
  4. ZANTAC 150 [Concomitant]
  5. CELEXA [Concomitant]

REACTIONS (2)
  - MALIGNANT NEOPLASM PROGRESSION [None]
  - PNEUMONIA [None]
